FAERS Safety Report 4613281-6 (Version None)
Quarter: 2005Q1

REPORT INFORMATION
  Report Type: 
  Country: None (occurrence: None)
  Receive Date: 20050315
  Receipt Date: 20040323
  Transmission Date: 20050727
  Serious: Yes (Hospitalization)
  Sender: FDA-Public Use
  Company Number: 7706

PATIENT
  Age: 64 Year
  Sex: Female

DRUGS (7)
  1. PAMIDRONATE DISODIUM [Suspect]
     Dates: start: 20020315, end: 20031121
  2. ZOLEDRONIC ACID [Suspect]
     Indication: BREAST CANCER
     Dosage: 8 MG
     Dates: start: 20031219, end: 20040116
  3. FENTANYL [Concomitant]
  4. OMEPRAZOLE [Concomitant]
  5. PROMETHAZINE [Concomitant]
  6. MOCLOBEMIDE [Concomitant]
  7. ANASTROZOLE [Concomitant]

REACTIONS (1)
  - RENAL FAILURE ACUTE [None]
